FAERS Safety Report 24321024 (Version 1)
Quarter: 2024Q3

REPORT INFORMATION
  Report Type: Report from Study
  Country: US (occurrence: None)
  Receive Date: 20240915
  Receipt Date: 20240915
  Transmission Date: 20241016
  Serious: Yes (Other)
  Sender: ASTRAZENECA
  Company Number: 2024A207669

PATIENT
  Sex: Male

DRUGS (1)
  1. CALQUENCE [Suspect]
     Active Substance: ACALABRUTINIB
     Indication: Chronic lymphocytic leukaemia
     Route: 048
     Dates: start: 20240329

REACTIONS (5)
  - Dehydration [Unknown]
  - Stress [Unknown]
  - Atrial fibrillation [Unknown]
  - Balance disorder [Unknown]
  - Product dose omission issue [Unknown]
